FAERS Safety Report 16231266 (Version 1)
Quarter: 2019Q2

REPORT INFORMATION
  Report Type: Spontaneous
  Country: DE (occurrence: DE)
  Receive Date: 20190424
  Receipt Date: 20190424
  Transmission Date: 20190711
  Serious: Yes (Other)
  Sender: FDA-Public Use
  Company Number: DE-SUN PHARMACEUTICAL INDUSTRIES LTD-2019RR-204825

PATIENT
  Age: 72 Year
  Sex: Female
  Weight: 86 kg

DRUGS (3)
  1. OXALIPLATIN SUN 5 MG/ML KONZENTRAT ZUR HERSTELLUNG [Suspect]
     Active Substance: OXALIPLATIN
     Indication: ADENOCARCINOMA OF COLON
     Dosage: 260 MILLIGRAM, 1 DOSE
     Route: 042
     Dates: start: 20190205
  2. OXALIPLATIN SUN 5 MG/ML KONZENTRAT ZUR HERSTELLUNG [Suspect]
     Active Substance: OXALIPLATIN
     Dosage: 260 MILLIGRAM, 1 DOSE
     Route: 042
     Dates: start: 20190226
  3. DEXAMETHASONE. [Concomitant]
     Active Substance: DEXAMETHASONE
     Indication: PREMEDICATION
     Dosage: 8 MILLIGRAM, 30 MINUTES BEFORE THERAPY
     Route: 042

REACTIONS (6)
  - Dyspnoea [Recovered/Resolved]
  - Dyspnoea [Recovered/Resolved]
  - Hypertension [Recovered/Resolved]
  - Stridor [Recovered/Resolved]
  - Suspected product quality issue [Unknown]
  - Stridor [Recovered/Resolved]

NARRATIVE: CASE EVENT DATE: 20190205
